FAERS Safety Report 23231747 (Version 3)
Quarter: 2023Q4

REPORT INFORMATION
  Report Type: Report from Study
  Country: US (occurrence: US)
  Receive Date: 20231127
  Receipt Date: 20231213
  Transmission Date: 20240109
  Serious: Yes (Hospitalization)
  Sender: FDA-Public Use
  Company Number: US-ARGENX-2023-ARGX-US003964

PATIENT

DRUGS (1)
  1. VYVGART [Suspect]
     Active Substance: EFGARTIGIMOD ALFA-FCAB
     Indication: Myasthenia gravis
     Dosage: 10 MG/KG
     Route: 042

REACTIONS (11)
  - Post procedural complication [Unknown]
  - Prostatectomy [Unknown]
  - Myasthenia gravis [Unknown]
  - Airway complication of anaesthesia [Unknown]
  - Renal failure [Unknown]
  - Bladder disorder [Unknown]
  - Myasthenia gravis crisis [Unknown]
  - Dysarthria [Unknown]
  - Eyelid ptosis [Unknown]
  - Asthenia [Unknown]
  - Fatigue [Unknown]
